FAERS Safety Report 5394336-8 (Version None)
Quarter: 2007Q3

REPORT INFORMATION
  Report Type: 
  Country: None (occurrence: None)
  Receive Date: 20070723
  Receipt Date: 20070524
  Transmission Date: 20080115
  Serious: No
  Sender: FDA-Public Use
  Company Number: A0652860A

PATIENT
  Sex: Male

DRUGS (4)
  1. AVANDIA [Suspect]
     Route: 048
     Dates: start: 20060401, end: 20070401
  2. METFORMIN HCL [Suspect]
     Route: 065
     Dates: start: 20060401
  3. VYTORIN [Concomitant]
  4. STARLIX [Concomitant]

REACTIONS (7)
  - CARPAL TUNNEL SYNDROME [None]
  - LIMB INJURY [None]
  - MUSCULAR WEAKNESS [None]
  - MUSCULOSKELETAL DISCOMFORT [None]
  - NERVE COMPRESSION [None]
  - OEDEMA PERIPHERAL [None]
  - PAIN IN EXTREMITY [None]
